FAERS Safety Report 24054100 (Version 1)
Quarter: 2024Q3

REPORT INFORMATION
  Report Type: Spontaneous
  Country: JP (occurrence: JP)
  Receive Date: 20240705
  Receipt Date: 20240705
  Transmission Date: 20241017
  Serious: Yes (Death)
  Sender: NOVARTIS
  Company Number: JP-002147023-NVSJ2024JP007889

PATIENT

DRUGS (2)
  1. TAFINLAR [Suspect]
     Active Substance: DABRAFENIB MESYLATE
     Indication: Brain neoplasm
     Dosage: 150 MG,  PRIOR TO APPROVAL FOR THE TREATMENT OF ADVANCED/RECURRENT SOLID TUMORS (24 NOV 2023)
     Route: 048
  2. MEKINIST [Suspect]
     Active Substance: TRAMETINIB DIMETHYL SULFOXIDE
     Indication: Brain neoplasm
     Dosage: 2 MG,  PRIOR TO APPROVAL FOR THE TREATMENT OF ADVANCED/RECURRENT SOLID TUMORS (24 NOV 2023)
     Route: 048

REACTIONS (5)
  - Brain neoplasm [Fatal]
  - Malignant neoplasm progression [Fatal]
  - Palmar-plantar erythrodysaesthesia syndrome [Unknown]
  - Nail deformation [Unknown]
  - Off label use [Unknown]
